FAERS Safety Report 7396102-0 (Version None)
Quarter: 2011Q2

REPORT INFORMATION
  Report Type: 
  Country: None (occurrence: None)
  Receive Date: 20110406
  Receipt Date: 20070601
  Transmission Date: 20111010
  Serious: Yes (Death, Other)
  Sender: FDA-Public Use
  Company Number: US-BAYER-200711693BWH

PATIENT
  Sex: Female
  Weight: 54 kg

DRUGS (46)
  1. ALLOPURINOL [Concomitant]
     Dosage: 300 MG, QD
     Route: 048
  2. ISOFLURANE [Concomitant]
     Dosage: UNK
     Route: 042
     Dates: start: 20050425
  3. AMOXICILLIN [Concomitant]
     Dosage: 500 MG, UNK
     Route: 048
     Dates: start: 20050302
  4. UROCIT-K [Concomitant]
     Dosage: 1080 MG, UNK
     Route: 048
  5. HEPARIN SODIUM [Concomitant]
     Dosage: UNK
     Route: 042
     Dates: start: 20050425
  6. NEO-SYNEPHRINOL [Concomitant]
     Dosage: UNK,UNK
     Route: 042
     Dates: start: 20050425
  7. NITROGLYCERIN [Concomitant]
     Dosage: UNK
     Route: 042
     Dates: start: 20050425
  8. SODIUM BICARBONATE [Concomitant]
     Dosage: UNK
     Route: 042
     Dates: start: 20050425
  9. PHENYLEPHRINE HCL [Concomitant]
     Dosage: UNK
     Route: 042
     Dates: start: 20050425
  10. TRASYLOL [Suspect]
     Indication: CORONARY ARTERY BYPASS
     Dosage: 200 ML LOADING DOSE
     Route: 042
  11. PLETAL [Concomitant]
     Dosage: 100 MG, QD
     Route: 048
  12. EPINEPHRINE [Concomitant]
     Dosage: UNK
     Route: 042
     Dates: start: 20050425
  13. KETOROLAC TROMETHAMINE [Concomitant]
     Dosage: UNK
     Route: 042
     Dates: start: 20050425
  14. ETHACRYNIC ACID [Concomitant]
     Dosage: UNK
     Route: 042
     Dates: start: 20050425
  15. AVANDAMET [Concomitant]
     Dosage: 2/500 MG / DAILY
     Route: 048
  16. LEVOTHYROXINE [Concomitant]
     Dosage: 100 MCG/24HR, QD
     Route: 048
  17. DARVOCET-N 50 [Concomitant]
     Dosage: DARVOCET-N 100 EVERY 4 HOURS AS NEEDED
     Route: 048
  18. LASIX [Concomitant]
     Dosage: 5 MG / HOUR
     Route: 042
     Dates: start: 20050425
  19. VASOPRESSIN [Concomitant]
     Dosage: UNK
     Route: 042
     Dates: start: 20050425
  20. PRIMACOR [Concomitant]
     Dosage: UNK
     Route: 042
     Dates: start: 20050425
  21. NESIRITIDE [Concomitant]
     Dosage: UNK
     Route: 042
     Dates: start: 20050425
  22. TRASYLOL [Suspect]
     Indication: AORTIC VALVE REPLACEMENT
     Dosage: 1 ML TEST DOSE
     Route: 042
     Dates: start: 20050425
  23. ACETYLSALICYLIC ACID SRT [Concomitant]
     Dosage: SUPPOSITORY
     Dates: start: 20050425
  24. ZOCOR [Concomitant]
     Dosage: 40 MG, QD
     Route: 048
  25. PROTONIX [Concomitant]
     Dosage: 40 MG, QD
     Route: 048
  26. CALCIUM CHLORIDE [Concomitant]
     Dosage: UNK
     Route: 042
     Dates: start: 20050425
  27. VERSED [Concomitant]
     Dosage: UNK
     Route: 042
     Dates: start: 20050425, end: 20050425
  28. BUMETANIDE [Concomitant]
     Dosage: UNK
     Route: 042
     Dates: start: 20050425
  29. TRASYLOL [Suspect]
     Dosage: 50 ML/HR
     Route: 042
     Dates: end: 20050425
  30. CORDARONE [Concomitant]
     Dosage: 150 MG, UNK
     Route: 042
     Dates: start: 20050425
  31. MANNITOL [Concomitant]
     Dosage: UNK
     Route: 042
     Dates: start: 20050425, end: 20050425
  32. VECURONIUM BROMIDE [Concomitant]
     Dosage: UNK
     Route: 042
     Dates: start: 20050425
  33. CILOSTAZOL [Concomitant]
     Dosage: 100 MG, BID
     Route: 048
  34. DOPAMINE [Concomitant]
     Dosage: 2-3 MCG / KG/ MIN
     Route: 042
     Dates: start: 20050425
  35. POTASSIUM CHLORIDE [Concomitant]
     Dosage: UNK
     Route: 042
     Dates: start: 20050425
  36. PITRESSIN [Concomitant]
     Dosage: UNK
     Route: 042
     Dates: start: 20050425
  37. CEFAZOLIN [Concomitant]
     Dosage: UNK
     Route: 042
     Dates: start: 20050425
  38. MORPHINE [Concomitant]
     Dosage: UNK UNK, PRN
     Route: 042
     Dates: start: 20050425, end: 20050612
  39. ACETYLSALICYLIC ACID SRT [Concomitant]
     Dosage: 81 MG, QD
     Route: 048
  40. COREG [Concomitant]
     Dosage: 6.25 MG, QD
     Route: 048
  41. PLATELETS [Concomitant]
     Dosage: 6 U, UNK
     Dates: start: 20050425
  42. PAPAVERIN [Concomitant]
     Dosage: UNK
     Route: 042
     Dates: start: 20050425
  43. PROTAMINE SULFATE [Concomitant]
     Dosage: UNK
     Route: 042
     Dates: start: 20050425
  44. ALBUMIN (HUMAN) [Concomitant]
     Dosage: UNK
     Route: 042
     Dates: start: 20050425
  45. LIDOCAINE [Concomitant]
     Dosage: UNK
     Route: 042
     Dates: start: 20050425
  46. WHOLE BLOOD [Concomitant]
     Dosage: 2 U, UNK
     Dates: start: 20050425

REACTIONS (9)
  - POSTOPERATIVE RENAL FAILURE [None]
  - RENAL FAILURE [None]
  - MULTI-ORGAN FAILURE [None]
  - INJURY [None]
  - NERVOUSNESS [None]
  - FEAR OF DEATH [None]
  - DEPRESSION [None]
  - EMOTIONAL DISTRESS [None]
  - DEATH [None]
